FAERS Safety Report 8500192-9 (Version None)
Quarter: 2012Q3

REPORT INFORMATION
  Report Type: 
  Country: None (occurrence: None)
  Receive Date: 20120710
  Receipt Date: 20120704
  Transmission Date: 20120928
  Serious: Yes (Other)
  Sender: FDA-Public Use
  Company Number: CO-PFIZER INC-2012161247

PATIENT
  Age: 6 Year
  Sex: Male

DRUGS (2)
  1. SALBUTAMOL [Concomitant]
     Indication: ASTHMA
     Dosage: 4 PUFF EVERY HOUR
     Route: 055
     Dates: start: 20120703
  2. GENOTROPIN [Suspect]
     Indication: BODY HEIGHT BELOW NORMAL
     Dosage: ONE DOSE PER DAY
     Route: 058
     Dates: start: 20120615, end: 20120620

REACTIONS (3)
  - ASTHMATIC CRISIS [None]
  - COUGH [None]
  - VOMITING [None]
